FAERS Safety Report 20666504 (Version 4)
Quarter: 2022Q3

REPORT INFORMATION
  Report Type: Spontaneous
  Country: US (occurrence: US)
  Receive Date: 20220403
  Receipt Date: 20220923
  Transmission Date: 20221027
  Serious: No
  Sender: FDA-Public Use
  Company Number: US-SA-SAC20220331000250

PATIENT
  Age: 6 Year
  Sex: Female

DRUGS (2)
  1. DUPIXENT [Suspect]
     Active Substance: DUPILUMAB
     Indication: Dermatitis atopic
     Dosage: 2 DF, 1X
     Route: 058
     Dates: start: 20220304, end: 20220304
  2. DUPIXENT [Suspect]
     Active Substance: DUPILUMAB
     Dosage: 300 MG, Q4W
     Route: 058
     Dates: start: 202204

REACTIONS (12)
  - Mental disorder [Unknown]
  - General physical health deterioration [Unknown]
  - Periorbital swelling [Unknown]
  - Dry skin [Unknown]
  - Ocular hyperaemia [Unknown]
  - Pruritus [Unknown]
  - Eye swelling [Unknown]
  - Conjunctivitis [Not Recovered/Not Resolved]
  - Erythema [Not Recovered/Not Resolved]
  - Vision blurred [Not Recovered/Not Resolved]
  - Dry eye [Unknown]
  - Eye pruritus [Unknown]

NARRATIVE: CASE EVENT DATE: 20220301
